APPROVED DRUG PRODUCT: METFORMIN HYDROCHLORIDE
Active Ingredient: METFORMIN HYDROCHLORIDE
Strength: 850MG
Dosage Form/Route: TABLET;ORAL
Application: A077853 | Product #002
Applicant: PROVIDENT PHARMACEUTICAL INC
Approved: Jul 28, 2006 | RLD: No | RS: No | Type: DISCN